FAERS Safety Report 15456084 (Version 1)
Quarter: 2018Q4

REPORT INFORMATION
  Report Type: Spontaneous
  Country: US (occurrence: US)
  Receive Date: 20181002
  Receipt Date: 20181002
  Transmission Date: 20190204
  Serious: No
  Sender: FDA-Public Use
  Company Number: US-BAYER-2018-182799

PATIENT
  Age: 45 Year
  Sex: Male

DRUGS (1)
  1. ULTRAVIST [Suspect]
     Active Substance: IOPROMIDE
     Indication: IMAGING PROCEDURE
     Dosage: 100 ML, ONCE
     Route: 042
     Dates: start: 20180927, end: 20180927

REACTIONS (1)
  - Vomiting [None]

NARRATIVE: CASE EVENT DATE: 201809
